FAERS Safety Report 25872626 (Version 2)
Quarter: 2025Q4

REPORT INFORMATION
  Report Type: Spontaneous
  Country: JP (occurrence: JP)
  Receive Date: 20251002
  Receipt Date: 20251105
  Transmission Date: 20260117
  Serious: Yes (Other)
  Sender: BRISTOL-MYERS SQUIBB COMPANY
  Company Number: JP-BRISTOL-MYERS SQUIBB COMPANY-2025-133408

PATIENT
  Age: 74 Year
  Sex: Male

DRUGS (7)
  1. YERVOY [Suspect]
     Active Substance: IPILIMUMAB
     Indication: Malignant melanoma
     Dosage: END OF 1 COURSE
     Route: 041
  2. YERVOY [Suspect]
     Active Substance: IPILIMUMAB
     Dosage: 2 COURSES
     Route: 041
  3. YERVOY [Suspect]
     Active Substance: IPILIMUMAB
     Dosage: COURSE 2
     Route: 041
  4. OPDIVO [Suspect]
     Active Substance: NIVOLUMAB
     Indication: Malignant melanoma
     Dosage: END OF 1 COURSE
     Route: 041
  5. OPDIVO [Suspect]
     Active Substance: NIVOLUMAB
     Dosage: 16 COURSES
     Route: 041
  6. OPDIVO [Suspect]
     Active Substance: NIVOLUMAB
     Dosage: 2 COURSES
     Route: 041
  7. OPDIVO [Suspect]
     Active Substance: NIVOLUMAB
     Dosage: COURSE 2
     Route: 041

REACTIONS (6)
  - Adrenal insufficiency [Unknown]
  - Immune-mediated hypothyroidism [Unknown]
  - Malignant neoplasm progression [Unknown]
  - Hepatic function abnormal [Unknown]
  - Immune-mediated lung disease [Unknown]
  - Leukoderma [Unknown]

NARRATIVE: CASE EVENT DATE: 20240101
